FAERS Safety Report 6583967-5 (Version None)
Quarter: 2010Q1

REPORT INFORMATION
  Report Type: 
  Country: None (occurrence: None)
  Receive Date: 20100216
  Receipt Date: 20091204
  Transmission Date: 20100710
  Serious: No
  Sender: FDA-Public Use
  Company Number: US-ABBOTT-09P-163-0612473-00

PATIENT
  Sex: Female

DRUGS (5)
  1. SIMCOR [Suspect]
     Indication: HYPERLIPIDAEMIA
     Dosage: 500/20 MG AT BED TIME
     Dates: start: 20091129
  2. GLUCOSAMINE NUTRIENT [Concomitant]
     Indication: DRUG USE FOR UNKNOWN INDICATION
  3. ASTRALGUS [Concomitant]
     Indication: DRUG USE FOR UNKNOWN INDICATION
  4. COLLOIDAL SILVER [Concomitant]
     Indication: DRUG USE FOR UNKNOWN INDICATION
  5. CEREFOLINAC [Concomitant]
     Indication: DRUG USE FOR UNKNOWN INDICATION
     Dates: start: 20091129

REACTIONS (1)
  - ABDOMINAL PAIN UPPER [None]
